FAERS Safety Report 25605480 (Version 1)
Quarter: 2025Q3

REPORT INFORMATION
  Report Type: Spontaneous
  Country: EU (occurrence: EU)
  Receive Date: 20250725
  Receipt Date: 20250725
  Transmission Date: 20251021
  Serious: Yes (Death, Hospitalization, Other)
  Sender: MYLAN
  Company Number: None

PATIENT
  Age: 80 Year
  Sex: Male

DRUGS (48)
  1. LEVETIRACETAM [Suspect]
     Active Substance: LEVETIRACETAM
     Indication: Epilepsy
     Dosage: 1500 MILLIGRAM, QD (1-0-2)
     Dates: start: 202502
  2. LEVETIRACETAM [Suspect]
     Active Substance: LEVETIRACETAM
     Dosage: 1500 MILLIGRAM, QD (1-0-2)
     Route: 065
     Dates: start: 202502
  3. LEVETIRACETAM [Suspect]
     Active Substance: LEVETIRACETAM
     Dosage: 1500 MILLIGRAM, QD (1-0-2)
     Route: 065
     Dates: start: 202502
  4. LEVETIRACETAM [Suspect]
     Active Substance: LEVETIRACETAM
     Dosage: 1500 MILLIGRAM, QD (1-0-2)
     Dates: start: 202502
  5. LEVETIRACETAM [Suspect]
     Active Substance: LEVETIRACETAM
     Indication: Epilepsy
     Dosage: 500 MILLIGRAM, BID (1-0-1)
     Dates: start: 20250610, end: 20250614
  6. LEVETIRACETAM [Suspect]
     Active Substance: LEVETIRACETAM
     Dosage: 500 MILLIGRAM, BID (1-0-1)
     Route: 048
     Dates: start: 20250610, end: 20250614
  7. LEVETIRACETAM [Suspect]
     Active Substance: LEVETIRACETAM
     Dosage: 500 MILLIGRAM, BID (1-0-1)
     Route: 048
     Dates: start: 20250610, end: 20250614
  8. LEVETIRACETAM [Suspect]
     Active Substance: LEVETIRACETAM
     Dosage: 500 MILLIGRAM, BID (1-0-1)
     Dates: start: 20250610, end: 20250614
  9. ASPIRIN [Concomitant]
     Active Substance: ASPIRIN
     Dosage: 100 MILLIGRAM, QD (1-0-0)
     Dates: start: 20250607, end: 20250620
  10. ASPIRIN [Concomitant]
     Active Substance: ASPIRIN
     Dosage: 100 MILLIGRAM, QD (1-0-0)
     Route: 048
     Dates: start: 20250607, end: 20250620
  11. ASPIRIN [Concomitant]
     Active Substance: ASPIRIN
     Dosage: 100 MILLIGRAM, QD (1-0-0)
     Route: 048
     Dates: start: 20250607, end: 20250620
  12. ASPIRIN [Concomitant]
     Active Substance: ASPIRIN
     Dosage: 100 MILLIGRAM, QD (1-0-0)
     Dates: start: 20250607, end: 20250620
  13. Piperacillin plus tazobactam eberth [Concomitant]
     Dosage: 1 DOSAGE FORM, Q8H (1-1-1)
     Dates: start: 20250611, end: 20250620
  14. Piperacillin plus tazobactam eberth [Concomitant]
     Dosage: 1 DOSAGE FORM, Q8H (1-1-1)
     Route: 042
     Dates: start: 20250611, end: 20250620
  15. Piperacillin plus tazobactam eberth [Concomitant]
     Dosage: 1 DOSAGE FORM, Q8H (1-1-1)
     Route: 042
     Dates: start: 20250611, end: 20250620
  16. Piperacillin plus tazobactam eberth [Concomitant]
     Dosage: 1 DOSAGE FORM, Q8H (1-1-1)
     Dates: start: 20250611, end: 20250620
  17. Ampicillin plus sulbactam eberth [Concomitant]
     Dosage: 1 DOSAGE FORM, Q8H (1-1-1)
     Dates: start: 20250607, end: 20250610
  18. Ampicillin plus sulbactam eberth [Concomitant]
     Dosage: 1 DOSAGE FORM, Q8H (1-1-1)
     Route: 042
     Dates: start: 20250607, end: 20250610
  19. Ampicillin plus sulbactam eberth [Concomitant]
     Dosage: 1 DOSAGE FORM, Q8H (1-1-1)
     Route: 042
     Dates: start: 20250607, end: 20250610
  20. Ampicillin plus sulbactam eberth [Concomitant]
     Dosage: 1 DOSAGE FORM, Q8H (1-1-1)
     Dates: start: 20250607, end: 20250610
  21. PANTOPRAZOLE SODIUM [Concomitant]
     Active Substance: PANTOPRAZOLE SODIUM
     Dosage: 20 MILLIGRAM,  QD (1-0-0)
     Dates: start: 20250607, end: 20250620
  22. PANTOPRAZOLE SODIUM [Concomitant]
     Active Substance: PANTOPRAZOLE SODIUM
     Dosage: 20 MILLIGRAM,  QD (1-0-0)
     Route: 048
     Dates: start: 20250607, end: 20250620
  23. PANTOPRAZOLE SODIUM [Concomitant]
     Active Substance: PANTOPRAZOLE SODIUM
     Dosage: 20 MILLIGRAM,  QD (1-0-0)
     Route: 048
     Dates: start: 20250607, end: 20250620
  24. PANTOPRAZOLE SODIUM [Concomitant]
     Active Substance: PANTOPRAZOLE SODIUM
     Dosage: 20 MILLIGRAM,  QD (1-0-0)
     Dates: start: 20250607, end: 20250620
  25. SODIUM BICARBONATE [Concomitant]
     Active Substance: SODIUM BICARBONATE
     Dosage: 1 GRAM, Q8H (1-1-1)
     Dates: start: 20250607, end: 20250612
  26. SODIUM BICARBONATE [Concomitant]
     Active Substance: SODIUM BICARBONATE
     Dosage: 1 GRAM, Q8H (1-1-1)
     Route: 048
     Dates: start: 20250607, end: 20250612
  27. SODIUM BICARBONATE [Concomitant]
     Active Substance: SODIUM BICARBONATE
     Dosage: 1 GRAM, Q8H (1-1-1)
     Route: 048
     Dates: start: 20250607, end: 20250612
  28. SODIUM BICARBONATE [Concomitant]
     Active Substance: SODIUM BICARBONATE
     Dosage: 1 GRAM, Q8H (1-1-1)
     Dates: start: 20250607, end: 20250612
  29. PANCRELIPASE [Concomitant]
     Active Substance: PANCRELIPASE
     Dosage: 2 DOSAGE FORM, QD (1-1-0)
     Dates: start: 20250607, end: 20250620
  30. PANCRELIPASE [Concomitant]
     Active Substance: PANCRELIPASE
     Dosage: 2 DOSAGE FORM, QD (1-1-0)
     Route: 048
     Dates: start: 20250607, end: 20250620
  31. PANCRELIPASE [Concomitant]
     Active Substance: PANCRELIPASE
     Dosage: 2 DOSAGE FORM, QD (1-1-0)
     Route: 048
     Dates: start: 20250607, end: 20250620
  32. PANCRELIPASE [Concomitant]
     Active Substance: PANCRELIPASE
     Dosage: 2 DOSAGE FORM, QD (1-1-0)
     Dates: start: 20250607, end: 20250620
  33. Clopidogrel TAD [Concomitant]
     Dosage: 75 MILLIGRAM, QD (1-0-0)
     Dates: start: 20250607, end: 20250609
  34. Clopidogrel TAD [Concomitant]
     Dosage: 75 MILLIGRAM, QD (1-0-0)
     Route: 048
     Dates: start: 20250607, end: 20250609
  35. Clopidogrel TAD [Concomitant]
     Dosage: 75 MILLIGRAM, QD (1-0-0)
     Route: 048
     Dates: start: 20250607, end: 20250609
  36. Clopidogrel TAD [Concomitant]
     Dosage: 75 MILLIGRAM, QD (1-0-0)
     Dates: start: 20250607, end: 20250609
  37. TORSEMIDE [Concomitant]
     Active Substance: TORSEMIDE
     Dosage: 10 MILLIGRAM, QD (1-0-0)
     Dates: start: 20250607, end: 20250611
  38. TORSEMIDE [Concomitant]
     Active Substance: TORSEMIDE
     Dosage: 10 MILLIGRAM, QD (1-0-0)
     Route: 048
     Dates: start: 20250607, end: 20250611
  39. TORSEMIDE [Concomitant]
     Active Substance: TORSEMIDE
     Dosage: 10 MILLIGRAM, QD (1-0-0)
     Route: 048
     Dates: start: 20250607, end: 20250611
  40. TORSEMIDE [Concomitant]
     Active Substance: TORSEMIDE
     Dosage: 10 MILLIGRAM, QD (1-0-0)
     Dates: start: 20250607, end: 20250611
  41. BISOPROLOL FUMARATE [Concomitant]
     Active Substance: BISOPROLOL FUMARATE
     Dosage: 7.5 MILLIGRAM, QD (1-0-0.5)
     Dates: start: 20250607, end: 20250620
  42. BISOPROLOL FUMARATE [Concomitant]
     Active Substance: BISOPROLOL FUMARATE
     Dosage: 7.5 MILLIGRAM, QD (1-0-0.5)
     Route: 048
     Dates: start: 20250607, end: 20250620
  43. BISOPROLOL FUMARATE [Concomitant]
     Active Substance: BISOPROLOL FUMARATE
     Dosage: 7.5 MILLIGRAM, QD (1-0-0.5)
     Route: 048
     Dates: start: 20250607, end: 20250620
  44. BISOPROLOL FUMARATE [Concomitant]
     Active Substance: BISOPROLOL FUMARATE
     Dosage: 7.5 MILLIGRAM, QD (1-0-0.5)
     Dates: start: 20250607, end: 20250620
  45. SIMVASTATIN [Concomitant]
     Active Substance: SIMVASTATIN
     Dosage: 20 MILLIGRAM, QD (0-0-1)
     Dates: start: 20250607, end: 20250609
  46. SIMVASTATIN [Concomitant]
     Active Substance: SIMVASTATIN
     Dosage: 20 MILLIGRAM, QD (0-0-1)
     Route: 048
     Dates: start: 20250607, end: 20250609
  47. SIMVASTATIN [Concomitant]
     Active Substance: SIMVASTATIN
     Dosage: 20 MILLIGRAM, QD (0-0-1)
     Route: 048
     Dates: start: 20250607, end: 20250609
  48. SIMVASTATIN [Concomitant]
     Active Substance: SIMVASTATIN
     Dosage: 20 MILLIGRAM, QD (0-0-1)
     Dates: start: 20250607, end: 20250609

REACTIONS (4)
  - Toxic epidermal necrolysis [Fatal]
  - Stevens-Johnson syndrome [Fatal]
  - Septic shock [Fatal]
  - Skin reaction [Unknown]

NARRATIVE: CASE EVENT DATE: 20250201
